FAERS Safety Report 9626503 (Version 1)
Quarter: 2013Q4

REPORT INFORMATION
  Report Type: Spontaneous
  Country: US (occurrence: None)
  Receive Date: 20131015
  Receipt Date: 20131015
  Transmission Date: 20140711
  Serious: No
  Sender: FDA-Public Use
  Company Number: None

PATIENT
  Age: 65 Year
  Sex: Female
  Weight: 70.31 kg

DRUGS (1)
  1. SUPREP [Suspect]
     Indication: COLONOSCOPY
     Dosage: 16 OZ
     Route: 048
     Dates: start: 20131014

REACTIONS (1)
  - Product taste abnormal [None]
